FAERS Safety Report 8475336-8 (Version None)
Quarter: 2012Q2

REPORT INFORMATION
  Report Type: 
  Country: None (occurrence: None)
  Receive Date: 20120628
  Receipt Date: 20120620
  Transmission Date: 20120825
  Serious: Yes (Hospitalization)
  Sender: FDA-Public Use
  Company Number: US-JNJFOC-2010011143

PATIENT
  Weight: 19.8 kg

DRUGS (5)
  1. CHILDREN'S BENADRYL ALLERGY [Suspect]
     Route: 048
  2. MOTRIN [Suspect]
     Indication: PRODUCT USED FOR UNKNOWN INDICATION
     Dosage: DAILY DOSE TEXT: UNKNOWN
     Route: 048
  3. CHILDREN'S MOTRIN [Suspect]
     Indication: PRODUCT USED FOR UNKNOWN INDICATION
     Dosage: DAILY DOSE TEXT: UNKNOWN
     Route: 048
  4. CHILDREN'S TYLENOL SUSPENSION [Suspect]
     Indication: PRODUCT USED FOR UNKNOWN INDICATION
     Dosage: DAILY DOSE TEXT: UNKNOWN
     Route: 048
  5. CHILDREN'S BENADRYL ALLERGY [Suspect]
     Indication: PRODUCT USED FOR UNKNOWN INDICATION
     Dosage: DAILY DOSE TEXT: UNKNOWN
     Route: 048

REACTIONS (5)
  - EAR INFECTION [None]
  - JOINT SWELLING [None]
  - PRODUCT QUALITY ISSUE [None]
  - ERYTHEMA [None]
  - URTICARIA [None]
